FAERS Safety Report 6420820-1 (Version None)
Quarter: 2009Q4

REPORT INFORMATION
  Report Type: 
  Country: None (occurrence: None)
  Receive Date: 20091030
  Receipt Date: 20091026
  Transmission Date: 20100525
  Serious: Yes (Death)
  Sender: FDA-Public Use
  Company Number: US-SANOFI-SYNTHELABO-A03200904991

PATIENT
  Sex: Male

DRUGS (2)
  1. MANY MEDICATIONS [Concomitant]
     Dosage: UNK
     Route: 065
  2. PLAVIX [Suspect]
     Indication: CARDIAC FAILURE CONGESTIVE
     Route: 048

REACTIONS (1)
  - MYOCARDIAL INFARCTION [None]
